FAERS Safety Report 21035217 (Version 1)
Quarter: 2022Q3

REPORT INFORMATION
  Report Type: Spontaneous
  Country: GB (occurrence: None)
  Receive Date: 20220701
  Receipt Date: 20220701
  Transmission Date: 20221026
  Serious: Yes (Disabling)
  Sender: FDA-Public Use
  Company Number: 2022A231259

PATIENT
  Age: 63 Year
  Sex: Male
  Weight: 73 kg

DRUGS (13)
  1. DAPAGLIFLOZIN [Suspect]
     Active Substance: DAPAGLIFLOZIN
     Dosage: DOSE-10, UNIT-3
     Route: 065
     Dates: start: 20220520, end: 20220617
  2. ATORVASTATIN [Concomitant]
     Active Substance: ATORVASTATIN
     Dosage: DOSE-1, UNIT-32, 1 / DAY
     Route: 065
     Dates: start: 20200810
  3. BISOPROLOL [Concomitant]
     Active Substance: BISOPROLOL
     Dosage: DOSE- 1, UNIT- 31, 1 / DAY, EVERY MORNING
     Route: 065
     Dates: start: 20200810
  4. CLOPIDOGREL [Concomitant]
     Active Substance: CLOPIDOGREL BISULFATE
     Dosage: DOSE- 1, UNIT- 31, 1 / DAY
     Route: 065
     Dates: start: 20200810
  5. EPLERENONE [Concomitant]
     Active Substance: EPLERENONE
     Dosage: DOSE- 0.5, UNIT- 31, 1 / DAY
     Route: 065
     Dates: start: 20200810
  6. FUROSEMIDE [Concomitant]
     Active Substance: FUROSEMIDE
     Dosage: DOSE- 1, UNIT- 31, 1 / DAY , EACH MORNING
     Route: 065
     Dates: start: 20211124, end: 20220414
  7. METFORMIN HYDROCHLORIDE [Concomitant]
     Active Substance: METFORMIN HYDROCHLORIDE
     Dosage: DOSE- 1, UNIT- 31, 1 / DAY
     Route: 065
     Dates: start: 20200810
  8. LANSOPRAZOLE [Concomitant]
     Active Substance: LANSOPRAZOLE
     Dosage: DOSE- 1, UNIT- 31, 1 / DAY
     Route: 065
     Dates: start: 20200810
  9. INSULIN ASPART [Concomitant]
     Active Substance: INSULIN ASPART
     Route: 058
     Dates: start: 20200810
  10. SACUBITRIL [Concomitant]
     Active Substance: SACUBITRIL
     Dosage: DOSE- 1, UNIT- 31, 1 / DAY
     Route: 065
     Dates: start: 20200810
  11. ALBUTEROL [Concomitant]
     Active Substance: ALBUTEROL
     Dosage: DOSE- 2, UNIT- 31, AS NEEDED
     Route: 055
     Dates: start: 20220219
  12. SPIRIVA [Concomitant]
     Active Substance: TIOTROPIUM BROMIDE MONOHYDRATE
     Dosage: DOSE- 2, UNIT- 31, 1 / DAY, TAKE TWO PUFFS ONCE DAILY (REPLACE INHALER DEVI
     Route: 065
     Dates: start: 20220219
  13. MINERAL OIL\PARAFFIN [Concomitant]
     Active Substance: MINERAL OIL\PARAFFIN
     Indication: Dry skin
     Dosage: (FOR MODERATE DRY SKIN) USE AS A SOAP SUBSTITUT
     Route: 065
     Dates: start: 20200810

REACTIONS (2)
  - Orthostatic hypotension [Recovered/Resolved]
  - Dizziness [Unknown]

NARRATIVE: CASE EVENT DATE: 20220620
